FAERS Safety Report 18100938 (Version 6)
Quarter: 2021Q3

REPORT INFORMATION
  Report Type: Report from Study
  Country: US (occurrence: US)
  Receive Date: 20200731
  Receipt Date: 20210819
  Transmission Date: 20211014
  Serious: No
  Sender: FDA-Public Use
  Company Number: NVSC2020US214522

PATIENT
  Sex: Male

DRUGS (1)
  1. COSENTYX [Suspect]
     Active Substance: SECUKINUMAB
     Indication: PRODUCT USED FOR UNKNOWN INDICATION
     Dosage: 300 MG, BIW
     Route: 058
     Dates: start: 20201115, end: 20201129

REACTIONS (5)
  - Lip haemorrhage [Unknown]
  - Pain [Unknown]
  - Chapped lips [Unknown]
  - Inappropriate schedule of product administration [Unknown]
  - Urticaria [Unknown]
